FAERS Safety Report 8394929-X (Version None)
Quarter: 2012Q2

REPORT INFORMATION
  Report Type: 
  Country: None (occurrence: None)
  Receive Date: 20120530
  Receipt Date: 20110822
  Transmission Date: 20120825
  Serious: No
  Sender: FDA-Public Use
  Company Number: US-GLAXOSMITHKLINE-A0942545A

PATIENT
  Age: 55 Year
  Sex: Female
  Weight: 81.6 kg

DRUGS (1)
  1. FLOLAN [Suspect]
     Indication: PULMONARY ARTERIAL HYPERTENSION
     Dates: start: 19990927

REACTIONS (1)
  - HERPES ZOSTER [None]
